FAERS Safety Report 12011378 (Version 2)
Quarter: 2016Q1

REPORT INFORMATION
  Report Type: Report from Study
  Country: US (occurrence: US)
  Receive Date: 20160205
  Receipt Date: 20160322
  Transmission Date: 20160526
  Serious: Yes (Hospitalization, Other)
  Sender: FDA-Public Use
  Company Number: US-BIOGEN-2014BI106410

PATIENT
  Sex: Male

DRUGS (1)
  1. TYSABRI [Suspect]
     Active Substance: NATALIZUMAB
     Indication: MULTIPLE SCLEROSIS
     Route: 042
     Dates: start: 20110603, end: 20140425

REACTIONS (28)
  - Arthropathy [Not Recovered/Not Resolved]
  - Tooth disorder [Recovered/Resolved]
  - Mobility decreased [Not Recovered/Not Resolved]
  - Delirium [Recovered/Resolved]
  - Musculoskeletal disorder [Not Recovered/Not Resolved]
  - Hypoaesthesia [Not Recovered/Not Resolved]
  - Memory impairment [Not Recovered/Not Resolved]
  - Cervical spinal stenosis [Unknown]
  - Spinal column stenosis [Not Recovered/Not Resolved]
  - Gait disturbance [Not Recovered/Not Resolved]
  - Psoriatic arthropathy [Not Recovered/Not Resolved]
  - Dysarthria [Not Recovered/Not Resolved]
  - Blindness transient [Recovered/Resolved]
  - Insomnia [Recovered/Resolved]
  - Visual impairment [Not Recovered/Not Resolved]
  - Lumbar spinal stenosis [Unknown]
  - Road traffic accident [Recovered/Resolved]
  - Depressed mood [Not Recovered/Not Resolved]
  - Pneumothorax [Recovered/Resolved]
  - Radial nerve palsy [Not Recovered/Not Resolved]
  - Cervical vertebral fracture [Unknown]
  - Spinal disorder [Recovered/Resolved]
  - Asthma [Not Recovered/Not Resolved]
  - Pain [Recovered/Resolved]
  - Motor dysfunction [Not Recovered/Not Resolved]
  - Scar [Unknown]
  - Intervertebral disc degeneration [Not Recovered/Not Resolved]
  - Influenza [Not Recovered/Not Resolved]

NARRATIVE: CASE EVENT DATE: 2012
